FAERS Safety Report 7313238-0 (Version None)
Quarter: 2011Q1

REPORT INFORMATION
  Report Type: 
  Country: None (occurrence: None)
  Receive Date: 20110225
  Receipt Date: 20110217
  Transmission Date: 20110831
  Serious: Yes (Hospitalization, Other)
  Sender: FDA-Public Use
  Company Number: US-JNJFOC-20100706527

PATIENT
  Sex: Male
  Weight: 70.31 kg

DRUGS (2)
  1. CIPROFLOXACIN [Suspect]
     Indication: INFECTION
     Route: 065
  2. LEVAQUIN [Suspect]
     Indication: INFECTION
     Route: 048

REACTIONS (2)
  - TENOSYNOVITIS STENOSANS [None]
  - DEPRESSION [None]
